FAERS Safety Report 14588585 (Version 1)
Quarter: 2018Q1

REPORT INFORMATION
  Report Type: Spontaneous
  Country: US (occurrence: US)
  Receive Date: 20180301
  Receipt Date: 20180301
  Transmission Date: 20180509
  Serious: Yes (Hospitalization, Other)
  Sender: FDA-Public Use
  Company Number: US-GLAXOSMITHKLINE-US2018033762

PATIENT
  Age: 65 Year
  Sex: Male

DRUGS (11)
  1. CETIRIZINE [Concomitant]
     Active Substance: CETIRIZINE HYDROCHLORIDE
  2. PANTOPRAZOLE [Concomitant]
     Active Substance: PANTOPRAZOLE
  3. VITAMIN B12 [Concomitant]
     Active Substance: CYANOCOBALAMIN
  4. ALBUTEROL. [Concomitant]
     Active Substance: ALBUTEROL
  5. AMBIEN [Concomitant]
     Active Substance: ZOLPIDEM TARTRATE
  6. PREDNISONE. [Concomitant]
     Active Substance: PREDNISONE
  7. TUMS [Concomitant]
     Active Substance: CALCIUM CARBONATE
  8. FLUTICASONE. [Concomitant]
     Active Substance: FLUTICASONE
  9. HYDROCHLOROTHIAZIDE. [Concomitant]
     Active Substance: HYDROCHLOROTHIAZIDE
  10. NUCALA [Suspect]
     Active Substance: MEPOLIZUMAB
     Indication: ASTHMA
     Dosage: 100 MG, CYC
     Route: 058
     Dates: start: 201602
  11. ASPIRIN. [Concomitant]
     Active Substance: ASPIRIN

REACTIONS (9)
  - Chest pain [Recovering/Resolving]
  - Chest discomfort [Recovering/Resolving]
  - Gastrooesophageal reflux disease [Unknown]
  - Cough [Recovering/Resolving]
  - Insomnia [Recovering/Resolving]
  - Rectal haemorrhage [Recovering/Resolving]
  - Productive cough [Recovering/Resolving]
  - Choking [Recovering/Resolving]
  - Dyspnoea [Recovering/Resolving]

NARRATIVE: CASE EVENT DATE: 201603
